FAERS Safety Report 25007046 (Version 2)
Quarter: 2025Q1

REPORT INFORMATION
  Report Type: Spontaneous
  Country: IT (occurrence: IT)
  Receive Date: 20250225
  Receipt Date: 20250301
  Transmission Date: 20250408
  Serious: Yes (Life-Threatening, Other)
  Sender: AUROBINDO
  Company Number: IT-MINISAL02-1024098

PATIENT
  Age: 69 Year
  Sex: Male

DRUGS (3)
  1. LORAZEPAM [Suspect]
     Active Substance: LORAZEPAM
     Indication: Product used for unknown indication
     Route: 048
     Dates: start: 20221227, end: 20221227
  2. OLANZAPINE [Suspect]
     Active Substance: OLANZAPINE
     Indication: Product used for unknown indication
     Route: 048
     Dates: start: 20221227
  3. MIRTAZAPINE [Suspect]
     Active Substance: MIRTAZAPINE
     Indication: Product used for unknown indication
     Route: 048
     Dates: start: 20221227, end: 20221227

REACTIONS (3)
  - Intentional self-injury [Recovered/Resolved]
  - Drug abuse [Recovered/Resolved]
  - Slow speech [Recovered/Resolved]

NARRATIVE: CASE EVENT DATE: 20221227
